FAERS Safety Report 8488279-0 (Version None)
Quarter: 2012Q3

REPORT INFORMATION
  Report Type: 
  Country: None (occurrence: None)
  Receive Date: 20120705
  Receipt Date: 20120702
  Transmission Date: 20120928
  Serious: Yes (Life-Threatening, Hospitalization)
  Sender: FDA-Public Use
  Company Number: FR-PFIZER INC-2012021187

PATIENT
  Age: 62 Year
  Sex: Male
  Weight: 87 kg

DRUGS (9)
  1. MABTHERA [Suspect]
     Indication: MANTLE CELL LYMPHOMA STAGE IV
     Dosage: UNK
     Dates: start: 20111212
  2. DEXAMETHASONE SODIUM PHOSPHATE [Suspect]
     Indication: MANTLE CELL LYMPHOMA STAGE IV
     Dosage: UNK
     Route: 042
     Dates: start: 20111212
  3. CARBOPLATIN [Suspect]
     Dosage: 700 MG, CYCLIC
     Route: 042
     Dates: start: 20120102, end: 20120102
  4. CYTARABINE [Suspect]
     Dosage: 4000 MG/M2, 1X/DAY
     Route: 042
     Dates: start: 20120103, end: 20120104
  5. DEXAMETHASONE SODIUM PHOSPHATE [Suspect]
     Dosage: 40 MG, SINGLE
     Route: 042
     Dates: start: 20120104, end: 20120104
  6. METHYLPREDNISOLONE [Concomitant]
     Indication: MANTLE CELL LYMPHOMA STAGE IV
     Dosage: UNK
     Dates: start: 20111212
  7. CARBOPLATIN [Suspect]
     Indication: MANTLE CELL LYMPHOMA STAGE IV
     Dosage: 700 MG, ONCE PER CYCLE
     Dates: start: 20111212
  8. CYTARABINE [Suspect]
     Indication: MANTLE CELL LYMPHOMA STAGE IV
     Dosage: UNK
     Dates: start: 20111212
  9. MABTHERA [Suspect]
     Dosage: 900 MG, CYCLIC
     Route: 042
     Dates: start: 20120102, end: 20120102

REACTIONS (3)
  - VENTRICULAR FIBRILLATION [None]
  - CARDIAC ARREST [None]
  - ATRIAL TACHYCARDIA [None]
